FAERS Safety Report 21588003 (Version 1)
Quarter: 2022Q4

REPORT INFORMATION
  Report Type: Report from Study
  Country: US (occurrence: US)
  Receive Date: 20221114
  Receipt Date: 20221114
  Transmission Date: 20230113
  Serious: No
  Sender: FDA-Public Use
  Company Number: US-ABBVIE-22K-163-4460222-00

PATIENT
  Sex: Female

DRUGS (3)
  1. SKYRIZI [Suspect]
     Active Substance: RISANKIZUMAB-RZAA
     Indication: Psoriasis
     Dosage: WEEK 0. FORM STRENGTH: 150 MILLIGRAM
     Route: 058
  2. SKYRIZI [Suspect]
     Active Substance: RISANKIZUMAB-RZAA
     Dosage: WEEK 4. FORM STRENGTH: 150 MILLIGRAM
     Route: 058
  3. SKYRIZI [Suspect]
     Active Substance: RISANKIZUMAB-RZAA
     Dosage: THERAPY START DATE : 26 APR 2022, FORM STRENGTH: 150 MILLIGRAM
     Route: 058

REACTIONS (2)
  - Psoriasis [Unknown]
  - Skin exfoliation [Recovering/Resolving]

NARRATIVE: CASE EVENT DATE: 20220101
